FAERS Safety Report 6347289-X (Version None)
Quarter: 2009Q3

REPORT INFORMATION
  Report Type: 
  Country: None (occurrence: None)
  Receive Date: 20090910
  Receipt Date: 20090903
  Transmission Date: 20100115
  Serious: Yes (Life-Threatening)
  Sender: FDA-Public Use
  Company Number: GB-TEVA-208267ISR

PATIENT
  Age: 21 Year
  Sex: Female
  Weight: 60 kg

DRUGS (1)
  1. ERYTHROMYCIN [Suspect]
     Route: 048
     Dates: start: 20090807, end: 20090810

REACTIONS (3)
  - PETECHIAE [None]
  - PURPURA [None]
  - THROMBOCYTOPENIA [None]
